FAERS Safety Report 5571457-8 (Version None)
Quarter: 2007Q4

REPORT INFORMATION
  Report Type: 
  Country: None (occurrence: None)
  Receive Date: 20071221
  Receipt Date: 20071217
  Transmission Date: 20080405
  Serious: Yes (Hospitalization)
  Sender: FDA-Public Use
  Company Number: US-GILEAD-2007-0013581

PATIENT
  Sex: Male
  Weight: 80.812 kg

DRUGS (19)
  1. AMBRISENTAN [Suspect]
     Indication: PULMONARY HYPERTENSION
     Route: 048
     Dates: start: 20070725
  2. SILDENAFIL CITRATE [Concomitant]
  3. METOLAZONE [Concomitant]
  4. LASIX [Concomitant]
  5. HYDRALAZINE [Concomitant]
  6. POTASSIUM CHLORIDE [Concomitant]
  7. PREDNISONE [Concomitant]
  8. DIGITEK [Concomitant]
  9. COUMADIN [Concomitant]
  10. FAMOTIDINE [Concomitant]
  11. ASPIRIN [Concomitant]
  12. CALCIUM [Concomitant]
  13. VITAMIN D [Concomitant]
  14. ALKALOL [Concomitant]
  15. TEMAZEPAM [Concomitant]
  16. ACETAMINOPHEN [Concomitant]
  17. OXYGEN [Concomitant]
  18. PULMICORT [Concomitant]
  19. SALINE NASAL SPRAY [Concomitant]

REACTIONS (1)
  - RIGHT VENTRICULAR FAILURE [None]
